FAERS Safety Report 7501471-4 (Version None)
Quarter: 2011Q2

REPORT INFORMATION
  Report Type: 
  Country: None (occurrence: None)
  Receive Date: 20110524
  Receipt Date: 20100110
  Transmission Date: 20111010
  Serious: Yes (Hospitalization, Other)
  Sender: FDA-Public Use
  Company Number: US-BAYER-201010285NA

PATIENT
  Age: 47 Year
  Sex: Male
  Weight: 60.771 kg

DRUGS (13)
  1. ACETYLSALICYLIC ACID SRT [Concomitant]
  2. PROTAMINE SULFATE [Concomitant]
     Dosage: 200GM
  3. INSULIN [Concomitant]
     Route: 042
  4. METOPROLOL [Concomitant]
     Dosage: 100MG TWICE PER DAY
     Route: 048
  5. ALTACE [Concomitant]
     Dosage: 10MG ONCE PER DAY
     Route: 048
  6. RED BLOOD CELLS [Concomitant]
     Dosage: 1 UNIT
  7. LIPITOR [Concomitant]
     Dosage: 40MG ONCE PER DAY
     Route: 048
  8. CAPTOPRIL [Concomitant]
  9. PLATELETS [Concomitant]
     Dosage: 6 PACKS IV
  10. TRASYLOL [Suspect]
     Indication: AORTIC ANEURYSM
     Dosage: 200 ML BOLUS THEN 50 ML HOUR.
     Route: 042
     Dates: start: 20070523, end: 20070523
  11. HYDROCHLOROTHIAZIDE [Concomitant]
  12. PLASMA [Concomitant]
     Dosage: 4 UNITS
  13. HEPARIN [Concomitant]
     Dosage: 5000 UNITS

REACTIONS (11)
  - RENAL FAILURE [None]
  - CEREBROVASCULAR ACCIDENT [None]
  - ANXIETY [None]
  - INJURY [None]
  - PAIN [None]
  - DEPRESSION [None]
  - FEAR [None]
  - ANHEDONIA [None]
  - MYOCARDIAL INFARCTION [None]
  - RENAL INJURY [None]
  - UNEVALUABLE EVENT [None]
